FAERS Safety Report 4632086-3 (Version None)
Quarter: 2005Q2

REPORT INFORMATION
  Report Type: 
  Country: None (occurrence: None)
  Receive Date: 20050411
  Receipt Date: 20050401
  Transmission Date: 20051028
  Serious: Yes (Hospitalization)
  Sender: FDA-Public Use
  Company Number: GBWYE551101APR05

PATIENT
  Sex: Male
  Weight: 110 kg

DRUGS (8)
  1. ENBREL [Suspect]
     Indication: RHEUMATOID ARTHRITIS
     Route: 058
     Dates: start: 20040708
  2. PREDNISOLONE [Concomitant]
  3. AMITRIPTYLINE HCL TAB [Concomitant]
  4. TRAMADOL HCL [Concomitant]
  5. FOLIC ACID [Concomitant]
  6. CELECOXIB [Concomitant]
  7. LANSOPRAZOLE [Concomitant]
  8. METHOTREXATE [Concomitant]

REACTIONS (4)
  - DYSPNOEA [None]
  - OEDEMA PERIPHERAL [None]
  - RASH ERYTHEMATOUS [None]
  - VASCULITIC RASH [None]
